FAERS Safety Report 6707627-2 (Version None)
Quarter: 2010Q2

REPORT INFORMATION
  Report Type: 
  Country: None (occurrence: None)
  Receive Date: 20100503
  Receipt Date: 20090430
  Transmission Date: 20101027
  Serious: Yes (Hospitalization)
  Sender: FDA-Public Use
  Company Number: US-ASTRAZENECA-2009UW10920

PATIENT
  Age: 49 Year
  Sex: Female

DRUGS (7)
  1. NEXIUM [Suspect]
     Route: 048
  2. LOBA [Concomitant]
  3. PAXIL [Concomitant]
  4. DILANTIN [Concomitant]
  5. METOPROLOL [Concomitant]
  6. HYDROHYZINE [Concomitant]
  7. PAROXETINE HCL [Concomitant]

REACTIONS (2)
  - ABDOMINAL PAIN UPPER [None]
  - HEADACHE [None]
